FAERS Safety Report 21173066 (Version 1)
Quarter: 2022Q3

REPORT INFORMATION
  Report Type: Spontaneous
  Country: US (occurrence: None)
  Receive Date: 20220804
  Receipt Date: 20220804
  Transmission Date: 20221026
  Serious: Yes (Other)
  Sender: FDA-Public Use
  Company Number: None

PATIENT
  Age: 61 Year
  Sex: Female
  Weight: 76.5 kg

DRUGS (6)
  1. PAXLOVID [Suspect]
     Active Substance: NIRMATRELVIR\RITONAVIR
     Indication: COVID-19
     Dosage: OTHER QUANTITY : 3 TABLET(S);?FREQUENCY : EVERY 12 HOURS;?
     Route: 048
     Dates: start: 20220801, end: 20220803
  2. LOSARTAN [Concomitant]
     Active Substance: LOSARTAN
  3. VitC [Concomitant]
  4. D [Concomitant]
  5. POTASSIUM [Concomitant]
     Active Substance: POTASSIUM
  6. ZINC [Concomitant]
     Active Substance: ZINC

REACTIONS (4)
  - Headache [None]
  - Blood pressure increased [None]
  - Hypoaesthesia oral [None]
  - Blood pressure systolic increased [None]

NARRATIVE: CASE EVENT DATE: 20220802
